FAERS Safety Report 24827722 (Version 3)
Quarter: 2025Q1

REPORT INFORMATION
  Report Type: Report from Study
  Country: US (occurrence: US)
  Receive Date: 20250109
  Receipt Date: 20250325
  Transmission Date: 20250409
  Serious: Yes (Other)
  Sender: ABBVIE
  Company Number: US-ABBVIE-5989224

PATIENT
  Age: 68 Year
  Sex: Female
  Weight: 53.523 kg

DRUGS (1)
  1. HUMIRA [Suspect]
     Active Substance: ADALIMUMAB
     Indication: Crohn^s disease
     Dosage: FORM STRENGTH: 40 MILLIGRAM
     Route: 058
     Dates: start: 202212, end: 20241204

REACTIONS (6)
  - Deafness bilateral [Recovered/Resolved]
  - Psoriasis [Recovering/Resolving]
  - Deafness bilateral [Recovered/Resolved]
  - Scab [Recovered/Resolved]
  - Scab [Not Recovered/Not Resolved]
  - Psoriasis [Recovered/Resolved]

NARRATIVE: CASE EVENT DATE: 20230701
